FAERS Safety Report 5287596-5 (Version None)
Quarter: 2007Q1

REPORT INFORMATION
  Report Type: 
  Country: None (occurrence: None)
  Receive Date: 20070124
  Receipt Date: 20061120
  Transmission Date: 20070707
  Serious: Yes (Other)
  Sender: FDA-Public Use
  Company Number: WAES 0611USA05932

PATIENT
  Age: 53 Year
  Sex: Male

DRUGS (5)
  1. INVANZ [Suspect]
     Indication: OSTEOMYELITIS
     Dosage: 1 GM/IV
     Route: 042
     Dates: start: 20061113
  2. DIOVAN [Concomitant]
  3. ECOTRIN [Concomitant]
  4. TEGRETOL [Concomitant]
  5. TRICOR [Concomitant]

REACTIONS (1)
  - CONVULSION [None]
